FAERS Safety Report 8219014-9 (Version None)
Quarter: 2012Q1

REPORT INFORMATION
  Report Type: 
  Country: None (occurrence: None)
  Receive Date: 20120319
  Receipt Date: 20120313
  Transmission Date: 20120608
  Serious: No
  Sender: FDA-Public Use
  Company Number: BR-B.I. PHARMACEUTICALS,INC./RIDGEFIELD-2012-BR-00217BR

PATIENT
  Sex: Female

DRUGS (2)
  1. TRAYENTA [Suspect]
  2. OMEPRAZOLE [Concomitant]

REACTIONS (1)
  - HYPERSENSITIVITY [None]
